FAERS Safety Report 6375869-4 (Version None)
Quarter: 2009Q3

REPORT INFORMATION
  Report Type: 
  Country: None (occurrence: None)
  Receive Date: 20090924
  Receipt Date: 20090917
  Transmission Date: 20100115
  Serious: Yes (Other)
  Sender: FDA-Public Use
  Company Number: US-JNJCH-2009025273

PATIENT
  Age: 7 Year
  Sex: Female
  Weight: 24.9 kg

DRUGS (2)
  1. CHILDREN'S ZYRTEC PERFECT MEASURE SUGAR-FREE DYE-FREE ALLERGY SYRUP [Suspect]
     Indication: URTICARIA
     Route: 048
  2. NOVOLOG [Concomitant]
     Indication: DIABETES MELLITUS
     Dosage: TEXT:EVERY TIME SHE EATS
     Route: 065

REACTIONS (1)
  - BLOOD GLUCOSE INCREASED [None]
